FAERS Safety Report 9013250 (Version 3)
Quarter: 2013Q1

REPORT INFORMATION
  Report Type: Spontaneous
  Country: IT (occurrence: PT)
  Receive Date: 20130114
  Receipt Date: 20130125
  Transmission Date: 20140127
  Serious: No
  Sender: FDA-Public Use
  Company Number: PT-FRI-1000041588

PATIENT
  Age: 37 Year
  Sex: Female
  Weight: 68 kg

DRUGS (4)
  1. FOSFOMYCIN [Suspect]
     Indication: URINARY TRACT INFECTION
     Dosage: 3 G
     Route: 048
     Dates: start: 20121129, end: 20121202
  2. FOLICIL [Concomitant]
     Dosage: 5 MG
     Dates: start: 201210
  3. VITAMINA C ALTER [Concomitant]
     Dosage: 1000 MG
     Dates: start: 20121129, end: 20121220
  4. SALBUTAMOL [Concomitant]
     Indication: ASTHMA

REACTIONS (4)
  - Prescribed overdose [Recovered/Resolved]
  - Exposure during pregnancy [Recovered/Resolved]
  - Abortion spontaneous [Recovered/Resolved]
  - Vaginal haemorrhage [Recovered/Resolved]
